FAERS Safety Report 20438137 (Version 1)
Quarter: 2022Q1

REPORT INFORMATION
  Report Type: Spontaneous
  Country: DE (occurrence: DE)
  Receive Date: 20220207
  Receipt Date: 20220207
  Transmission Date: 20220423
  Serious: No
  Sender: FDA-Public Use
  Company Number: None

PATIENT
  Age: 83 Year
  Sex: Male
  Weight: 75 kg

DRUGS (5)
  1. PREGABALIN [Suspect]
     Active Substance: PREGABALIN
     Indication: Drug therapy
     Dosage: 3 DOSAGE FORM, OD
     Route: 065
     Dates: start: 2017
  2. QUETIAPINE FUMARATE [Suspect]
     Active Substance: QUETIAPINE FUMARATE
     Indication: Drug therapy
     Dosage: UNK
     Route: 065
     Dates: start: 2017
  3. PIPAMPERONE [Suspect]
     Active Substance: PIPAMPERONE
     Indication: Drug therapy
     Dosage: 1 DOSAGE FORM, OD
     Route: 065
     Dates: start: 2017
  4. RIVASTIGMINE TARTRATE [Suspect]
     Active Substance: RIVASTIGMINE TARTRATE
     Indication: Dementia
     Dosage: 2 DOSAGE FORM, OD
     Route: 048
     Dates: start: 20211014, end: 20211014
  5. RAMIPRIL [Concomitant]
     Active Substance: RAMIPRIL
     Indication: Cardiac disorder
     Dosage: UNK
     Route: 065

REACTIONS (9)
  - Decreased appetite [Recovered/Resolved]
  - Feeling abnormal [Recovered/Resolved]
  - Drug interaction [Unknown]
  - Tremor [Recovered/Resolved]
  - Muscle twitching [Recovered/Resolved]
  - Hypertension [Recovered/Resolved]
  - Hiccups [Recovered/Resolved]
  - Restlessness [Not Recovered/Not Resolved]
  - Vomiting [Recovered/Resolved]

NARRATIVE: CASE EVENT DATE: 20211014
